FAERS Safety Report 6613150-6 (Version None)
Quarter: 2010Q1

REPORT INFORMATION
  Report Type: 
  Country: None (occurrence: None)
  Receive Date: 20100225
  Receipt Date: 20100215
  Transmission Date: 20100710
  Serious: Yes (Hospitalization)
  Sender: FDA-Public Use
  Company Number: 2010000781

PATIENT
  Age: 75 Year
  Sex: Male

DRUGS (4)
  1. TREANDA [Suspect]
     Indication: B-CELL LYMPHOMA
     Dosage: 157- 77 MG PER 28 DAYS INTRAVENOUS DAILY, INTRAVENOUS
     Route: 042
     Dates: start: 20100128, end: 20100129
  2. RITUXIMAB (RITUXIMAB) [Suspect]
     Indication: B-CELL LYMPHOMA
     Dosage: 137-28 MG PER 28 DAYS, INTRAVENOUS (NOT OTHERWISE SPECIFIED)
     Route: 042
  3. MITOXANTRONE (MITOXANTRONE) [Suspect]
     Indication: B-CELL LYMPHOMA
     Dosage: 10-52 MG PER 28 DAYS, INTRAVENOUS (NOT OTHERWISE SPECIFIED)
     Route: 042
     Dates: start: 20100128, end: 20100129
  4. DEXAMETHASONE TAB [Suspect]
     Indication: B-CELL LYMPHOMA
     Dosage: 20 MG, DAY 1-5 OF 28 DAYS), ORAL
     Route: 048
     Dates: start: 20100128, end: 20100129

REACTIONS (3)
  - EJECTION FRACTION DECREASED [None]
  - HYPOALBUMINAEMIA [None]
  - PLEURAL EFFUSION [None]
